FAERS Safety Report 8579125-5 (Version None)
Quarter: 2012Q3

REPORT INFORMATION
  Report Type: 
  Country: None (occurrence: None)
  Receive Date: 20120808
  Receipt Date: 20120724
  Transmission Date: 20120928
  Serious: Yes (Other)
  Sender: FDA-Public Use
  Company Number: CH-ROCHE-1075048

PATIENT
  Sex: Female
  Weight: 69.553 kg

DRUGS (16)
  1. LUCENTIS [Suspect]
     Indication: PRODUCT USED FOR UNKNOWN INDICATION
     Route: 050
     Dates: start: 20110101
  2. LUCENTIS [Suspect]
     Route: 050
     Dates: start: 20110104
  3. LUCENTIS [Suspect]
     Route: 050
     Dates: start: 20120309
  4. TRIMETHOPRIM [Concomitant]
  5. LUCENTIS [Suspect]
     Route: 050
     Dates: start: 20110101
  6. CALCIMAGON-D3 [Concomitant]
  7. LUCENTIS [Suspect]
     Route: 050
     Dates: start: 20110101
  8. LUCENTIS [Suspect]
     Route: 050
     Dates: start: 20110101
  9. LUCENTIS [Suspect]
     Route: 050
     Dates: start: 20111201
  10. ESOMEPRAZOLE [Concomitant]
  11. LUCENTIS [Suspect]
     Route: 050
     Dates: start: 20110101
  12. ENOXAPARIN SODIUM [Concomitant]
  13. LUCENTIS [Suspect]
     Route: 050
     Dates: start: 20110101
  14. LUCENTIS [Suspect]
     Route: 050
     Dates: start: 20120208
  15. LUCENTIS [Suspect]
     Route: 050
     Dates: start: 20110101
  16. LUCENTIS [Suspect]
     Route: 050
     Dates: start: 20120424

REACTIONS (13)
  - FULL BLOOD COUNT ABNORMAL [None]
  - FRACTURE TREATMENT [None]
  - CARDIAC ANEURYSM [None]
  - CEREBRAL ARTERY EMBOLISM [None]
  - APHASIA [None]
  - SENSORIMOTOR DISORDER [None]
  - RED BLOOD CELL SEDIMENTATION RATE ABNORMAL [None]
  - C-REACTIVE PROTEIN ABNORMAL [None]
  - FEMORAL NECK FRACTURE [None]
  - CARDIAC DISORDER [None]
  - DIASTOLIC DYSFUNCTION [None]
  - MITRAL VALVE INCOMPETENCE [None]
  - LEFT VENTRICULAR DYSFUNCTION [None]
